FAERS Safety Report 15887745 (Version 1)
Quarter: 2019Q1

REPORT INFORMATION
  Report Type: Spontaneous
  Country: US (occurrence: US)
  Receive Date: 20190130
  Receipt Date: 20190130
  Transmission Date: 20190417
  Serious: No
  Sender: FDA-Public Use
  Company Number: US-009507513-1901USA002297

PATIENT
  Age: 36 Year
  Sex: Female

DRUGS (1)
  1. NEXPLANON [Suspect]
     Active Substance: ETONOGESTREL
     Dosage: 1 ROD EVERY 3 YEARS
     Route: 059
     Dates: start: 2017, end: 201801

REACTIONS (8)
  - Implant site discolouration [Unknown]
  - Implant site exfoliation [Unknown]
  - Product use issue [Unknown]
  - Implant site hyperaesthesia [Unknown]
  - Excessive granulation tissue [Unknown]
  - Implant site pain [Unknown]
  - Implant site scar [Unknown]
  - Device expulsion [Recovered/Resolved]

NARRATIVE: CASE EVENT DATE: 2017
